FAERS Safety Report 5623542-X (Version None)
Quarter: 2008Q1

REPORT INFORMATION
  Report Type: 
  Country: None (occurrence: None)
  Receive Date: 20080129
  Receipt Date: 20070607
  Transmission Date: 20080703
  Serious: Yes (Life-Threatening, Hospitalization, Disabling, Other)
  Sender: FDA-Public Use
  Company Number: WAES 0706USA01297

PATIENT
  Age: 46 Year
  Sex: Male

DRUGS (1)
  1. INVANZ [Suspect]
     Indication: INFECTION
     Dosage: DAILY
     Dates: start: 20070530

REACTIONS (1)
  - CONVULSION [None]
